FAERS Safety Report 6779735-1 (Version None)
Quarter: 2010Q2

REPORT INFORMATION
  Report Type: 
  Country: None (occurrence: None)
  Receive Date: 20100618
  Receipt Date: 20100608
  Transmission Date: 20101027
  Serious: Yes (Other)
  Sender: FDA-Public Use
  Company Number: US-PFIZER INC-2010072633

PATIENT
  Sex: Female
  Weight: 91.625 kg

DRUGS (9)
  1. XALATAN [Suspect]
     Indication: GLAUCOMA
     Dosage: ONE DROP IN EACH EYE, 1X/DAY
     Dates: start: 20090101
  2. XALATAN [Suspect]
     Dosage: 1 DROP IN THE RIGHT EYE, 1X/DAY
     Route: 047
  3. PREDNISONE [Suspect]
     Indication: COLITIS
     Dosage: 30 MG, UNK
     Dates: start: 20100501
  4. CATAPRES [Concomitant]
     Indication: HYPERTENSION
     Dosage: UNK
  5. HYDROCHLOROTHIAZIDE [Concomitant]
     Dosage: UNK
  6. IMURAN [Concomitant]
     Indication: COLITIS
     Dosage: 50 MG, UNK
  7. LYRICA [Concomitant]
     Dosage: 75 MG, UNK
  8. LISINOPRIL [Concomitant]
     Dosage: 40 MG, UNK
  9. SIMVASTATIN [Concomitant]
     Indication: BLOOD CHOLESTEROL
     Dosage: UNK

REACTIONS (2)
  - BLOOD GLUCOSE INCREASED [None]
  - COLITIS [None]
